FAERS Safety Report 15219559 (Version 3)
Quarter: 2018Q3

REPORT INFORMATION
  Report Type: Report from Study
  Country: TW (occurrence: TW)
  Receive Date: 20180731
  Receipt Date: 20180927
  Transmission Date: 20181010
  Serious: Yes (Hospitalization)
  Sender: FDA-Public Use
  Company Number: TW-ACTELION-A-CH2018-175969

PATIENT
  Age: 30 Year
  Sex: Female
  Weight: 55.9 kg

DRUGS (6)
  1. UPTRAVI [Suspect]
     Active Substance: SELEXIPAG
     Dosage: 200 MCG, BID
     Route: 048
     Dates: start: 20180823
  2. OPSUMIT [Suspect]
     Active Substance: MACITENTAN
     Indication: PULMONARY ARTERIAL HYPERTENSION
     Dosage: 10 MG, QD
     Route: 048
     Dates: start: 201502
  3. UPTRAVI [Suspect]
     Active Substance: SELEXIPAG
     Dosage: 400 MCG, BID
     Route: 048
     Dates: start: 20180809, end: 20180823
  4. FURIDE [Concomitant]
     Dosage: 20 MG, QD
     Route: 048
     Dates: start: 20180822
  5. UPTRAVI [Suspect]
     Active Substance: SELEXIPAG
     Indication: PULMONARY ARTERIAL HYPERTENSION
     Dosage: 200 MCG, BID
     Route: 048
     Dates: start: 20180716
  6. HERBESSER [Concomitant]
     Active Substance: DILTIAZEM HYDROCHLORIDE
     Dosage: UNK, BID
     Route: 048
     Dates: start: 20180822, end: 20180919

REACTIONS (10)
  - Ascites [Unknown]
  - Headache [Unknown]
  - Oedema [Unknown]
  - Diarrhoea [Unknown]
  - Weight increased [Unknown]
  - Cough [Unknown]
  - Dizziness [Unknown]
  - Oedema peripheral [Unknown]
  - Vision blurred [Unknown]
  - Arrhythmia [Unknown]

NARRATIVE: CASE EVENT DATE: 20180712
